FAERS Safety Report 8277392-9 (Version None)
Quarter: 2012Q2

REPORT INFORMATION
  Report Type: 
  Country: None (occurrence: None)
  Receive Date: 20120412
  Receipt Date: 20120403
  Transmission Date: 20120825
  Serious: Yes (Hospitalization, Other)
  Sender: FDA-Public Use
  Company Number: US-ASTRAZENECA-2010SE33303

PATIENT
  Age: 62 Year
  Sex: Female

DRUGS (17)
  1. PLAVIX [Concomitant]
  2. TIZANIDINE HCL [Concomitant]
  3. FOLIC ACID [Concomitant]
  4. CARAFATE [Concomitant]
  5. DOCUSATE [Concomitant]
  6. FLEXERIL [Concomitant]
  7. POTASSIUM CHLORIDE [Concomitant]
  8. MORPHINE [Concomitant]
  9. PROTONIX [Concomitant]
     Dosage: BID
  10. NORVASC [Concomitant]
  11. NEXIUM [Suspect]
     Dosage: TID
     Route: 048
  12. OMEPRAZOLE [Suspect]
     Route: 048
  13. TOPROL-XL [Suspect]
     Route: 048
  14. ASPIRIN [Concomitant]
  15. IMDUR [Concomitant]
  16. LISINOPRIL [Concomitant]
  17. NEURONTIN [Concomitant]

REACTIONS (12)
  - ULCER [None]
  - DRUG INEFFECTIVE [None]
  - DIVERTICULUM [None]
  - GASTROOESOPHAGEAL REFLUX DISEASE [None]
  - ABDOMINAL DISCOMFORT [None]
  - ABDOMINAL PAIN UPPER [None]
  - ANAEMIA [None]
  - ERUCTATION [None]
  - MALAISE [None]
  - INTENTIONAL DRUG MISUSE [None]
  - HAEMORRHOIDS [None]
  - INAPPROPRIATE SCHEDULE OF DRUG ADMINISTRATION [None]
